FAERS Safety Report 8398822-8 (Version None)
Quarter: 2012Q2

REPORT INFORMATION
  Report Type: 
  Country: None (occurrence: None)
  Receive Date: 20120531
  Receipt Date: 20120522
  Transmission Date: 20120825
  Serious: Yes (Disabling)
  Sender: FDA-Public Use
  Company Number: JP-ASTRAZENECA-2012SE20681

PATIENT
  Age: 49 Year
  Sex: Female
  Weight: 55 kg

DRUGS (10)
  1. ROPIVACAINE HYDROCHLORIDE [Suspect]
     Indication: EPIDURAL ANAESTHESIA
     Dosage: 2MG/ML, DECREASED FROM 5 ML/H TO 3 ML/H
     Route: 008
     Dates: start: 20120316, end: 20120317
  2. FLURBIPROFEN [Concomitant]
     Indication: POSTOPERATIVE ANALGESIA
     Route: 042
     Dates: start: 20120316, end: 20120316
  3. REMIFENTANIL HYDROCHLORIDE [Concomitant]
     Indication: INDUCTION AND MAINTENANCE OF ANAESTHESIA
     Route: 042
     Dates: start: 20120316, end: 20120316
  4. CEFMETAZOLE SODIUM [Concomitant]
     Indication: INFECTION PROPHYLAXIS
     Route: 042
     Dates: start: 20120316, end: 20120316
  5. DROPERIDOL [Concomitant]
     Indication: ANTIEMETIC SUPPORTIVE CARE
     Route: 042
     Dates: start: 20120316, end: 20120316
  6. SEVOFLURANE [Concomitant]
     Indication: MAINTENANCE OF ANAESTHESIA
     Route: 065
     Dates: start: 20120316, end: 20120316
  7. ROCURONIUM BROMIDE [Concomitant]
     Indication: INDUCTION OF ANAESTHESIA
     Route: 042
     Dates: start: 20120316, end: 20120316
  8. SUGAMMADEX SODIUM [Concomitant]
     Indication: HYPOTONIA
     Route: 042
     Dates: start: 20120316, end: 20120316
  9. PROPOFOL [Concomitant]
     Indication: INDUCTION OF ANAESTHESIA
     Route: 042
     Dates: start: 20120316, end: 20120316
  10. XYLOCAINE [Concomitant]
     Dosage: 70 MG; 09:27: 3 ML 10:00: 4 ML
     Route: 040
     Dates: start: 20120316, end: 20120316

REACTIONS (1)
  - DIPLEGIA [None]
